FAERS Safety Report 17747937 (Version 1)
Quarter: 2020Q2

REPORT INFORMATION
  Report Type: Spontaneous
  Country: US (occurrence: US)
  Receive Date: 20200505
  Receipt Date: 20200505
  Transmission Date: 20200714
  Serious: No
  Sender: FDA-Public Use
  Company Number: US-ROCHE-2528252

PATIENT
  Sex: Male
  Weight: 97.61 kg

DRUGS (11)
  1. OTHER EMOLLIENTS AND PROTECTIVES [Concomitant]
     Active Substance: UNSPECIFIED INGREDIENT
     Indication: SKIN FISSURES
     Route: 061
     Dates: start: 2019
  2. OTHER DERMATOLOGICALS [Concomitant]
     Active Substance: UNSPECIFIED INGREDIENT
     Indication: SKIN FISSURES
     Route: 065
     Dates: start: 2019
  3. ACETAMINOPHEN. [Concomitant]
     Active Substance: ACETAMINOPHEN
     Indication: HEADACHE
     Route: 048
     Dates: start: 2019
  4. TAMSULOSIN HCL [Concomitant]
     Active Substance: TAMSULOSIN HYDROCHLORIDE
     Indication: PROSTATOMEGALY
     Route: 048
  5. MUPIROCIN. [Concomitant]
     Active Substance: MUPIROCIN
     Indication: SKIN FISSURES
     Route: 061
     Dates: start: 2019
  6. CROMOLYN SODIUM. [Suspect]
     Active Substance: CROMOLYN SODIUM
     Indication: COUGH
     Dosage: 80 MG IN 1.33ML AMPULE, 3 TIMES A DAY, NEBULIZER.
     Route: 055
     Dates: start: 201910
  7. PETROLEUM JELLY [Concomitant]
     Active Substance: PETROLATUM
     Indication: SKIN FISSURES
     Route: 061
     Dates: start: 2019
  8. XARELTO [Concomitant]
     Active Substance: RIVAROXABAN
     Indication: ANTICOAGULANT THERAPY
     Route: 048
     Dates: start: 2019
  9. ESBRIET [Suspect]
     Active Substance: PIRFENIDONE
     Dosage: 1 PILL, 3 TIMES A DAY
     Route: 048
     Dates: start: 20200113
  10. COENZYME Q10 [Concomitant]
     Active Substance: UBIDECARENONE
     Route: 048
  11. ESBRIET [Suspect]
     Active Substance: PIRFENIDONE
     Indication: IDIOPATHIC PULMONARY FIBROSIS
     Route: 048
     Dates: start: 201412, end: 20191221

REACTIONS (5)
  - Blood creatinine increased [Not Recovered/Not Resolved]
  - Skin fissures [Not Recovered/Not Resolved]
  - Ill-defined disorder [Unknown]
  - Cough [Not Recovered/Not Resolved]
  - Rash [Not Recovered/Not Resolved]

NARRATIVE: CASE EVENT DATE: 201910
